FAERS Safety Report 11746020 (Version 1)
Quarter: 2015Q4

REPORT INFORMATION
  Report Type: Spontaneous
  Country: US (occurrence: US)
  Receive Date: 20151117
  Receipt Date: 20151117
  Transmission Date: 20160304
  Serious: No
  Sender: FDA-Public Use
  Company Number: US-PFIZER INC-2015354639

PATIENT
  Age: 68 Year
  Sex: Female

DRUGS (9)
  1. LACTULOSE. [Concomitant]
     Active Substance: LACTULOSE
     Dosage: UNK
  2. OXYCODONE HYDROCHLORIDE. [Concomitant]
     Active Substance: OXYCODONE HYDROCHLORIDE
     Dosage: UNK
  3. SYNTHROID [Concomitant]
     Active Substance: LEVOTHYROXINE SODIUM
     Dosage: UNK
  4. FOLIC ACID. [Concomitant]
     Active Substance: FOLIC ACID
     Dosage: UNK
  5. SUTENT [Suspect]
     Active Substance: SUNITINIB MALATE
     Dosage: 50 MG, UNK
  6. WARFARIN SODIUM. [Concomitant]
     Active Substance: WARFARIN SODIUM
     Dosage: UNK
  7. NORVASC [Concomitant]
     Active Substance: AMLODIPINE BESYLATE
     Dosage: UNK
  8. STOOL SOFTENER [Concomitant]
     Active Substance: DOCUSATE CALCIUM
     Dosage: UNK
  9. DURAGESIC-12 [Concomitant]
     Dosage: UNK

REACTIONS (1)
  - Blood count abnormal [Unknown]
